FAERS Safety Report 11132434 (Version 5)
Quarter: 2015Q3

REPORT INFORMATION
  Report Type: Report from Study
  Country: FR (occurrence: FR)
  Receive Date: 20150522
  Receipt Date: 20150901
  Transmission Date: 20151125
  Serious: Yes (Hospitalization)
  Sender: FDA-Public Use
  Company Number: FR-BAYER-2015-245540

PATIENT
  Age: 72 Year
  Sex: Male
  Weight: 92 kg

DRUGS (13)
  1. PARACETAMOL [Concomitant]
     Active Substance: ACETAMINOPHEN
     Dosage: UNK
  2. DEXERYL [GLYCEROL,PARAFFIN, LIQUID,WHITE SOFT PARAFFIN] [Concomitant]
  3. SORAFENIB (RAF KINASE INHIBITOR) [Suspect]
     Active Substance: SORAFENIB
     Indication: COLORECTAL CANCER METASTATIC
     Dosage: 400 MG, BID
     Route: 048
     Dates: start: 20131118, end: 20140422
  4. EMEND [Concomitant]
     Active Substance: APREPITANT
  5. DEXERYL [CHLORPHENAM MAL,DEXTROMET HBR,GUAIF,PHENYLEPHR HCL] [Concomitant]
  6. IRINOTECAN [Suspect]
     Active Substance: IRINOTECAN
     Indication: K-RAS GENE MUTATION
  7. SORAFENIB (RAF KINASE INHIBITOR) [Suspect]
     Active Substance: SORAFENIB
     Indication: K-RAS GENE MUTATION
  8. ONDANSETRON [Concomitant]
     Active Substance: ONDANSETRON
     Dosage: 8 MG, BID
     Route: 048
  9. LOPERAMIDE [Concomitant]
     Active Substance: LOPERAMIDE
     Indication: DIARRHOEA
     Dosage: IF NECESSARY
  10. BICARBONAT [Concomitant]
  11. IRINOTECAN [Suspect]
     Active Substance: IRINOTECAN
     Indication: COLORECTAL CANCER METASTATIC
     Dosage: 252 MG (1 TIME PER CYCLE)
     Route: 042
     Dates: start: 20131118, end: 20140409
  12. PREDNISONE. [Concomitant]
     Active Substance: PREDNISONE
  13. TIORFAN [Concomitant]
     Active Substance: RACECADOTRIL
     Dosage: 1 DF, TID

REACTIONS (1)
  - Ischaemic stroke [Recovered/Resolved]

NARRATIVE: CASE EVENT DATE: 20140422
